FAERS Safety Report 4451987-2 (Version None)
Quarter: 2004Q3

REPORT INFORMATION
  Report Type: 
  Country: None (occurrence: None)
  Receive Date: 20040915
  Receipt Date: 20040915
  Transmission Date: 20050211
  Serious: Yes (Hospitalization)
  Sender: FDA-Public Use
  Company Number: None

PATIENT
  Sex: Male
  Weight: 59 kg

DRUGS (1)
  1. CAPECITABINE CYCLE 1 COMPLETED [Suspect]
     Indication: POSTOPERATIVE CARE
     Dosage: 2150 MG BID
     Dates: start: 20040816, end: 20040828

REACTIONS (2)
  - PNEUMONIA [None]
  - URINARY TRACT INFECTION [None]
